FAERS Safety Report 22636836 (Version 1)
Quarter: 2023Q2

REPORT INFORMATION
  Report Type: Spontaneous
  Country: CA (occurrence: CA)
  Receive Date: 20230626
  Receipt Date: 20230626
  Transmission Date: 20230721
  Serious: Yes (Hospitalization, Other)
  Sender: FDA-Public Use
  Company Number: CA-OCTA-NGAM04922CA

PATIENT
  Sex: Male
  Weight: 87 kg

DRUGS (2)
  1. PANZYGA [Suspect]
     Active Substance: HUMAN IMMUNOGLOBULIN G
     Indication: Immune thrombocytopenia
     Route: 042
     Dates: start: 20220405, end: 20220405
  2. PLATELETS [Concomitant]
     Active Substance: HUMAN PLATELET, ALLOGENIC
     Indication: Immune thrombocytopenia
     Dosage: MASKED
     Dates: start: 20220405, end: 20220405

REACTIONS (6)
  - Transfusion-associated dyspnoea [Recovered/Resolved]
  - Chills [Recovered/Resolved]
  - Hypertension [Recovered/Resolved]
  - Tachycardia [Recovered/Resolved]
  - Transfusion reaction [Recovered/Resolved]
  - Use of accessory respiratory muscles [Recovered/Resolved]

NARRATIVE: CASE EVENT DATE: 20220405
